FAERS Safety Report 4691465-9 (Version None)
Quarter: 2005Q2

REPORT INFORMATION
  Report Type: 
  Country: None (occurrence: None)
  Receive Date: 20050613
  Receipt Date: 20050218
  Transmission Date: 20051028
  Serious: Yes (Other)
  Sender: FDA-Public Use
  Company Number: S05-USA-00824-01

PATIENT
  Age: 17 Year
  Sex: Female

DRUGS (1)
  1. LEXAPRO [Suspect]
     Indication: DEPRESSION
     Dates: start: 20041201

REACTIONS (4)
  - ANXIETY [None]
  - APATHY [None]
  - FLAT AFFECT [None]
  - SUICIDAL IDEATION [None]
